FAERS Safety Report 20568683 (Version 3)
Quarter: 2022Q1

REPORT INFORMATION
  Report Type: Spontaneous
  Country: ES (occurrence: ES)
  Receive Date: 20220308
  Receipt Date: 20220330
  Transmission Date: 20220423
  Serious: Yes (Hospitalization, Other)
  Sender: FDA-Public Use
  Company Number: None

PATIENT
  Age: 70 Year
  Sex: Male

DRUGS (11)
  1. CISATRACURIUM BESYLATE [Suspect]
     Active Substance: CISATRACURIUM BESYLATE
     Indication: Sedation
     Dosage: UNK
     Route: 042
     Dates: start: 20200918, end: 20200928
  2. MORPHINE [Suspect]
     Active Substance: MORPHINE
     Indication: Sedation
     Dosage: UNK
     Route: 042
     Dates: start: 20200918, end: 20200928
  3. ATORVASTATIN CALCIUM [Concomitant]
     Active Substance: ATORVASTATIN CALCIUM
     Indication: Type V hyperlipidaemia
     Dosage: 20.0 MG, 1X/DAY (AT DINNER)
     Route: 048
     Dates: start: 20170814
  4. OMEPRAZOL CINFA [Concomitant]
     Indication: Hyperlipidaemia
     Dosage: 40.0 MG BEFORE BREAKFAST
     Route: 048
     Dates: start: 20120228
  5. ALOPURINOL CINFA [Concomitant]
     Indication: Type V hyperlipidaemia
     Dosage: 100 MG, 1X/DAY (AT BREAKFAST)
     Route: 048
     Dates: start: 20111124
  6. SILODOSIN [Concomitant]
     Active Substance: SILODOSIN
     Indication: Benign prostatic hyperplasia
     Dosage: 8.0 MG, 1X/DAY (EVERY 24 HOURS)
     Route: 048
     Dates: start: 20160121
  7. INDAPAMIDA CINFA [Concomitant]
     Indication: Essential hypertension
     Dosage: 1.5 MG, 1X/DAY (AT BREAKFAST)
     Route: 048
     Dates: start: 20131024
  8. RAMIPRIL [Concomitant]
     Active Substance: RAMIPRIL
     Indication: Essential hypertension
     Dosage: 10.0 MG, 1X/DAY (AT BREAKFAST)
     Route: 048
     Dates: start: 20131024
  9. METFORMIN HYDROCHLORIDE\VILDAGLIPTIN [Concomitant]
     Active Substance: METFORMIN HYDROCHLORIDE\VILDAGLIPTIN
     Indication: Type 2 diabetes mellitus
     Dosage: 1 DF, 2X/DAY (BREAKFAST AND DINNER )
     Route: 048
     Dates: start: 20190220
  10. LERCANIDIPINO CINFA [Concomitant]
     Indication: Essential hypertension
     Dosage: 20.0 MG, 1X/DAY (BEFORE DINNER)
     Route: 048
     Dates: start: 20130913
  11. MUSE [Concomitant]
     Active Substance: ALPROSTADIL
     Indication: Organic erectile dysfunction
     Dosage: 1000.0 UG EVERY 7 DAYS
     Route: 066
     Dates: start: 20181003

REACTIONS (1)
  - Ileus paralytic [Not Recovered/Not Resolved]

NARRATIVE: CASE EVENT DATE: 20200928
